FAERS Safety Report 8033918-1 (Version None)
Quarter: 2011Q4

REPORT INFORMATION
  Report Type: 
  Country: None (occurrence: None)
  Receive Date: 20111222
  Receipt Date: 20111212
  Transmission Date: 20120403
  Serious: Yes (Death, Life-Threatening, Hospitalization, Other)
  Sender: FDA-Public Use
  Company Number: 2011MA017564

PATIENT
  Sex: Male
  Weight: 102.9665 kg

DRUGS (13)
  1. EPINEPHRINE [Concomitant]
  2. DOPAMINE HCL [Concomitant]
  3. LEVAQUIN [Concomitant]
  4. FUROSEMIDE [Concomitant]
  5. ZAROXOLYN [Concomitant]
  6. AMBIEN [Concomitant]
  7. KLOR-CON [Concomitant]
  8. ATROPINE [Concomitant]
  9. DIGOXIN [Suspect]
     Indication: PRODUCT USED FOR UNKNOWN INDICATION
     Dosage: 0.25 MG;QD;PO
     Route: 048
     Dates: start: 20000117, end: 20070711
  10. LISINOPRIL [Concomitant]
  11. HUMULIN 70/30 [Concomitant]
  12. DIOVAN [Concomitant]
  13. METOPROLOL TARTRATE [Concomitant]

REACTIONS (62)
  - ANAEMIA [None]
  - NECK PAIN [None]
  - MYOCARDIAL INFARCTION [None]
  - PULMONARY EMBOLISM [None]
  - BLOOD PRESSURE DECREASED [None]
  - ATRIOVENTRICULAR BLOCK FIRST DEGREE [None]
  - BUNDLE BRANCH BLOCK [None]
  - SUPRAVENTRICULAR TACHYCARDIA [None]
  - CORONARY ARTERY DISEASE [None]
  - CHEST DISCOMFORT [None]
  - OEDEMA PERIPHERAL [None]
  - DIZZINESS [None]
  - MYOCARDIAL ISCHAEMIA [None]
  - RESPIRATORY ARREST [None]
  - BRADYCARDIA [None]
  - BLOOD PRESSURE FLUCTUATION [None]
  - BLOOD PRESSURE INCREASED [None]
  - CARDIAC FAILURE CONGESTIVE [None]
  - OEDEMA [None]
  - ANXIETY [None]
  - LEFT VENTRICULAR DYSFUNCTION [None]
  - LOSS OF CONSCIOUSNESS [None]
  - LUNG INFECTION [None]
  - ARTERIOSCLEROSIS CORONARY ARTERY [None]
  - DYSPNOEA [None]
  - HYPOTENSION [None]
  - DYSPNOEA EXERTIONAL [None]
  - HYPOXIC-ISCHAEMIC ENCEPHALOPATHY [None]
  - DILATATION VENTRICULAR [None]
  - SINUS TACHYCARDIA [None]
  - URINARY TRACT INFECTION [None]
  - CACHEXIA [None]
  - COUGH [None]
  - WEIGHT INCREASED [None]
  - AZOTAEMIA [None]
  - HYPOVOLAEMIA [None]
  - HYPERTENSION [None]
  - WEIGHT DECREASED [None]
  - OXYGEN SUPPLEMENTATION [None]
  - BACK PAIN [None]
  - ORTHOPNOEA [None]
  - FALL [None]
  - BLOOD GLUCOSE INCREASED [None]
  - DIABETES MELLITUS [None]
  - INSOMNIA [None]
  - PNEUMONIA [None]
  - WOUND [None]
  - CARDIAC ARREST [None]
  - APNOEA [None]
  - ARRHYTHMIA [None]
  - SYNCOPE [None]
  - WEIGHT FLUCTUATION [None]
  - CONDUCTION DISORDER [None]
  - DECREASED ACTIVITY [None]
  - RENAL FAILURE ACUTE [None]
  - ASTHENIA [None]
  - HYPOXIA [None]
  - DEEP VEIN THROMBOSIS [None]
  - GLAUCOMA [None]
  - DIABETIC EYE DISEASE [None]
  - PULSE ABSENT [None]
  - CYANOSIS [None]
